FAERS Safety Report 5270297-7 (Version None)
Quarter: 2007Q1

REPORT INFORMATION
  Report Type: 
  Country: None (occurrence: None)
  Receive Date: 20070320
  Receipt Date: 20070308
  Transmission Date: 20070707
  Serious: Yes (Death)
  Sender: FDA-Public Use
  Company Number: US-PFIZER INC-2005107366

PATIENT
  Sex: Male

DRUGS (6)
  1. NEURONTIN [Suspect]
     Indication: DEPRESSION
     Dates: start: 20030201, end: 20030703
  2. NEURONTIN [Suspect]
     Indication: RESTLESSNESS
  3. NEURONTIN [Suspect]
     Indication: ANXIETY
  4. RISPERDAL [Concomitant]
  5. PAXIL [Concomitant]
  6. TRAZODONE HCL [Concomitant]

REACTIONS (3)
  - COMPLETED SUICIDE [None]
  - DRUG INEFFECTIVE [None]
  - INJURY [None]
